FAERS Safety Report 6441129-6 (Version None)
Quarter: 2009Q4

REPORT INFORMATION
  Report Type: 
  Country: None (occurrence: None)
  Receive Date: 20091113
  Receipt Date: 20091113
  Transmission Date: 20100525
  Serious: Yes (Life-Threatening)
  Sender: FDA-Public Use
  Company Number: None

PATIENT
  Age: 59 Year
  Sex: Female
  Weight: 70.3075 kg

DRUGS (1)
  1. TAMIFLU [Suspect]
     Indication: INFLUENZA
     Dosage: 75MG BID PO
     Route: 048
     Dates: start: 20091110, end: 20091111

REACTIONS (5)
  - AGGRESSION [None]
  - HALLUCINATION [None]
  - INSOMNIA [None]
  - SUICIDAL IDEATION [None]
  - TREMOR [None]
